FAERS Safety Report 4401957-5 (Version None)
Quarter: 2004Q3

REPORT INFORMATION
  Report Type: 
  Country: None (occurrence: None)
  Receive Date: 20040720
  Receipt Date: 20040511
  Transmission Date: 20050211
  Serious: Yes (Hospitalization, Other)
  Sender: FDA-Public Use
  Company Number: DE-BRISTOL-MYERS SQUIBB COMPANY-12584660

PATIENT
  Age: 63 Year
  Sex: Female
  Weight: 63 kg

DRUGS (7)
  1. CARBOPLATIN [Suspect]
     Indication: ENDOMETRIAL CANCER METASTATIC
     Dosage: 1ST DOSE- 11-DEC-03 @ 540 MG
     Route: 042
     Dates: start: 20040401, end: 20040401
  2. CAELYX [Suspect]
     Indication: ENDOMETRIAL CANCER METASTATIC
     Dosage: 1ST DOSE ON 11-DEC-03 @ 73.2 MG
     Route: 042
     Dates: start: 20040401, end: 20040401
  3. THYROXINE [Concomitant]
     Indication: SECONDARY HYPOTHYROIDISM
     Route: 048
     Dates: start: 19780101
  4. FORTECORTIN [Concomitant]
     Indication: PROPHYLAXIS
     Dosage: ALSO GIVEN 20 MG DOSING IV
     Route: 048
     Dates: start: 20031211
  5. RANITIDINE [Concomitant]
     Indication: PROPHYLAXIS
     Route: 042
     Dates: start: 20031211
  6. GRANISETRON [Concomitant]
     Indication: VOMITING
     Route: 042
     Dates: start: 20031211
  7. KALIUM [Concomitant]
     Indication: HYPOKALAEMIA
     Dosage: DOSE=1 AMPOULE
     Route: 042
     Dates: start: 20040401

REACTIONS (2)
  - ANAEMIA [None]
  - VERTIGO [None]
